FAERS Safety Report 18274011 (Version 1)
Quarter: 2020Q3

REPORT INFORMATION
  Report Type: Spontaneous
  Country: US (occurrence: US)
  Receive Date: 20200916
  Receipt Date: 20200916
  Transmission Date: 20201103
  Serious: No
  Sender: FDA-Public Use
  Company Number: US-LEXICON PHARMACEUTICALS, INC-20-1606-00716

PATIENT
  Age: 78 Year
  Sex: Female

DRUGS (11)
  1. VITAMIN C [Concomitant]
     Active Substance: ASCORBIC ACID
  2. MULTIVITAMIN ADULT [Concomitant]
  3. MONTELUKAST SODIUM. [Concomitant]
     Active Substance: MONTELUKAST SODIUM
  4. XERMELO [Suspect]
     Active Substance: TELOTRISTAT ETHYL
     Indication: CARCINOID TUMOUR OF THE SMALL BOWEL
     Dates: start: 20200717
  5. ASPIRIN. [Concomitant]
     Active Substance: ASPIRIN
  6. CLARITIN [Concomitant]
     Active Substance: LORATADINE
  7. BIOTIN [Concomitant]
     Active Substance: BIOTIN
  8. METOPROLOL TARTRATE. [Concomitant]
     Active Substance: METOPROLOL TARTRATE
  9. LISINOPRIL. [Concomitant]
     Active Substance: LISINOPRIL
  10. LOMOTIL [Concomitant]
     Active Substance: ATROPINE SULFATE\DIPHENOXYLATE HYDROCHLORIDE
  11. FISH OIL [Concomitant]
     Active Substance: FISH OIL

REACTIONS (1)
  - Flatulence [Unknown]
